FAERS Safety Report 25645946 (Version 1)
Quarter: 2025Q3

REPORT INFORMATION
  Report Type: Spontaneous
  Country: US (occurrence: None)
  Receive Date: 20250804
  Receipt Date: 20250804
  Transmission Date: 20251021
  Serious: Yes (Life-Threatening, Hospitalization)
  Sender: FDA-CTU
  Company Number: None

PATIENT
  Age: 38 Year
  Sex: Female

DRUGS (3)
  1. BOTOX [Suspect]
     Active Substance: ONABOTULINUMTOXINA
     Dates: start: 20250728, end: 20250728
  2. CERIVASTATIN SODIUM [Suspect]
     Active Substance: CERIVASTATIN SODIUM
  3. WATER [Suspect]
     Active Substance: WATER

REACTIONS (3)
  - Product communication issue [None]
  - Neurological symptom [None]
  - Product quality issue [None]

NARRATIVE: CASE EVENT DATE: 20250730
